FAERS Safety Report 4504308-0 (Version None)
Quarter: 2004Q4

REPORT INFORMATION
  Report Type: 
  Country: None (occurrence: None)
  Receive Date: 20041116
  Receipt Date: 20041103
  Transmission Date: 20050328
  Serious: Yes (Hospitalization)
  Sender: FDA-Public Use
  Company Number: 2004-BP-11214BP

PATIENT
  Age: 79 Year
  Sex: Female

DRUGS (5)
  1. CATAPRES [Suspect]
     Indication: HYPERTENSION
     Dosage: 0.1 MG (2.5 MG, 1 PATCH WEEKLY) TO
     Route: 061
     Dates: start: 20041006
  2. TRAZODONE HCL [Concomitant]
  3. PREVACID [Concomitant]
  4. ZETIA [Concomitant]
  5. NORVASC [Concomitant]

REACTIONS (2)
  - CHEST PAIN [None]
  - LUNG NEOPLASM MALIGNANT [None]
